FAERS Safety Report 8229704-X (Version None)
Quarter: 2012Q1

REPORT INFORMATION
  Report Type: 
  Country: None (occurrence: None)
  Receive Date: 20120322
  Receipt Date: 20120307
  Transmission Date: 20120608
  Serious: Yes (Death, Hospitalization)
  Sender: FDA-Public Use
  Company Number: PHHY2012IE007181

PATIENT
  Sex: Female

DRUGS (1)
  1. GILENYA [Suspect]
     Indication: MULTIPLE SCLEROSIS
     Dosage: 0.5 MG, QD
     Route: 048
     Dates: start: 20111017, end: 20111201

REACTIONS (14)
  - CONFUSIONAL STATE [None]
  - CENTRAL NERVOUS SYSTEM LESION [None]
  - FAECAL INCONTINENCE [None]
  - MEMORY IMPAIRMENT [None]
  - PROGRESSIVE MULTIPLE SCLEROSIS [None]
  - PNEUMONIA ASPIRATION [None]
  - NEUROLOGICAL DECOMPENSATION [None]
  - TREMOR [None]
  - CHOKING [None]
  - DYSARTHRIA [None]
  - APHASIA [None]
  - DYSPHAGIA [None]
  - URINARY INCONTINENCE [None]
  - HYPERTONIA [None]
